FAERS Safety Report 22654683 (Version 1)
Quarter: 2023Q2

REPORT INFORMATION
  Report Type: Spontaneous
  Country: US (occurrence: US)
  Receive Date: 20230629
  Receipt Date: 20230629
  Transmission Date: 20230721
  Serious: Yes (Hospitalization)
  Sender: FDA-Public Use
  Company Number: US-NOVOPROD-1082973

PATIENT
  Age: 53 Year
  Sex: Female

DRUGS (1)
  1. OZEMPIC [Suspect]
     Active Substance: SEMAGLUTIDE
     Indication: Obesity
     Dosage: UNK
     Route: 058

REACTIONS (6)
  - Euglycaemic diabetic ketoacidosis [Recovered/Resolved]
  - Unresponsive to stimuli [Recovered/Resolved]
  - Hypoglycaemia [Recovered/Resolved]
  - Malnutrition [Recovered/Resolved]
  - Ketosis [Recovered/Resolved]
  - Product use in unapproved indication [Unknown]
